FAERS Safety Report 7001026-4 (Version None)
Quarter: 2010Q3

REPORT INFORMATION
  Report Type: 
  Country: None (occurrence: None)
  Receive Date: 20100920
  Receipt Date: 20070523
  Transmission Date: 20110219
  Serious: Yes (Other)
  Sender: FDA-Public Use
  Company Number: US-ASTRAZENECA-2006UW24128

PATIENT
  Sex: Female
  Weight: 55.1 kg

DRUGS (7)
  1. SEROQUEL [Suspect]
     Indication: BIPOLAR DISORDER
     Dosage: 100 - 300 MG
     Route: 048
     Dates: start: 19981023
  2. SEROQUEL [Suspect]
     Dosage: 100MG, 600MG
     Route: 048
     Dates: start: 20060801
  3. RISPERDAL [Suspect]
  4. ZYPREXA [Suspect]
  5. HALDOL [Concomitant]
  6. LEVOXYL [Concomitant]
     Route: 048
     Dates: start: 19981023
  7. REMERON [Concomitant]
     Dosage: 15 - 30 MG
     Dates: start: 19981023

REACTIONS (1)
  - PANCREATITIS [None]
